FAERS Safety Report 7552397-1 (Version None)
Quarter: 2011Q2

REPORT INFORMATION
  Report Type: 
  Country: None (occurrence: None)
  Receive Date: 20110616
  Receipt Date: 20110530
  Transmission Date: 20111010
  Serious: Yes (Death, Hospitalization)
  Sender: FDA-Public Use
  Company Number: PHHO2010JP14737

PATIENT
  Sex: Female
  Weight: 44 kg

DRUGS (19)
  1. VOLTAREN [Suspect]
     Dosage: 50 MG, QD
     Route: 054
     Dates: start: 20100706, end: 20100816
  2. OLMESARTAN MEDOXOMIL [Concomitant]
  3. VOLTAREN [Suspect]
     Dosage: 50 MG, PRN
     Route: 054
     Dates: start: 20100905
  4. CELECOXIB [Suspect]
     Indication: RHEUMATOID ARTHRITIS
     Dosage: 200 MG, BID
     Route: 048
     Dates: start: 20100526, end: 20100905
  5. JUVELA NICOTINATE [Suspect]
  6. MAGNESIUM OXIDE [Suspect]
  7. FAMOTIDINE [Concomitant]
  8. PREDNISOLONE [Suspect]
     Dosage: 12 MG, QD
     Route: 048
     Dates: start: 20100906, end: 20100923
  9. PREDNISOLONE [Suspect]
     Dosage: 42 MG, QD
     Route: 048
     Dates: start: 20100924, end: 20100924
  10. DEXAMETHASONE SODIUM PHOSPHATE [Suspect]
  11. SULFAMETHOXAZOLE [Suspect]
  12. VOLTAREN [Suspect]
     Indication: RHEUMATOID ARTHRITIS
     Dosage: 50 MG, BID
     Route: 054
     Dates: start: 20100818, end: 20100904
  13. LOXOPROFEN SODIUM [Suspect]
     Indication: RHEUMATOID ARTHRITIS
     Dosage: 120 MG, BID
     Dates: start: 20041228, end: 20100906
  14. PREDNISOLONE [Suspect]
     Indication: RHEUMATOID ARTHRITIS
     Dosage: 5 MG, QD
     Route: 048
     Dates: start: 20020111, end: 20100905
  15. BENIDIPINE HYDROCHLORIDE [Concomitant]
  16. PREDNISOLONE [Suspect]
     Dosage: 12 MG, QD
     Dates: start: 20100925, end: 20100926
  17. CODEINE SULFATE [Suspect]
  18. STRONG NEO-MINOPHAGEN C [Suspect]
  19. ISONIAZID [Concomitant]

REACTIONS (35)
  - SWELLING [None]
  - PAIN [None]
  - PRODUCTIVE COUGH [None]
  - BACTERIAL TEST POSITIVE [None]
  - CHILLS [None]
  - MULTI-ORGAN FAILURE [None]
  - JAUNDICE [None]
  - HEPATIC NEOPLASM [None]
  - ABDOMINAL DISCOMFORT [None]
  - OEDEMA PERIPHERAL [None]
  - DYSPNOEA [None]
  - PLEURISY [None]
  - INTERSTITIAL LUNG DISEASE [None]
  - PYREXIA [None]
  - HOT FLUSH [None]
  - DISSEMINATED INTRAVASCULAR COAGULATION [None]
  - DYSPNOEA EXERTIONAL [None]
  - LUNG DISORDER [None]
  - FATIGUE [None]
  - SENSE OF OPPRESSION [None]
  - TREMOR [None]
  - RESPIRATORY DISORDER [None]
  - PULMONARY FUNCTION TEST ABNORMAL [None]
  - MALAISE [None]
  - HYPOAESTHESIA [None]
  - FLATULENCE [None]
  - THROMBOTIC THROMBOCYTOPENIC PURPURA [None]
  - BACTERIAL INFECTION [None]
  - GASTROINTESTINAL SOUNDS ABNORMAL [None]
  - RHEUMATOID ARTHRITIS [None]
  - COUGH [None]
  - LIVER DISORDER [None]
  - HEPATITIS [None]
  - ABDOMINAL DISTENSION [None]
  - RALES [None]
